FAERS Safety Report 4821227-0 (Version None)
Quarter: 2005Q4

REPORT INFORMATION
  Report Type: 
  Country: None (occurrence: None)
  Receive Date: 20051103
  Receipt Date: 20051021
  Transmission Date: 20060501
  Serious: Yes (Hospitalization, Other)
  Sender: FDA-Public Use
  Company Number: 2005118603

PATIENT
  Age: 73 Year
  Sex: Female

DRUGS (7)
  1. DELTASONE [Suspect]
     Indication: RHEUMATOID ARTHRITIS
     Dosage: 5 MG (1 IN 1 D)
     Dates: start: 20020501
  2. ETANERCEPT (ETANERCEPT) [Suspect]
     Indication: RHEUMATOID ARTHRITIS
     Dosage: 50 MG (50 MG, 1 IN 1 WK), PARENTERAL
     Route: 051
     Dates: start: 20030124
  3. METHOTREXATE [Suspect]
     Indication: RHEUMATOID ARTHRITIS
     Dosage: 7.5 MG (1 IN 1 WK)
  4. SYNTHROID [Concomitant]
  5. ACTONEL [Concomitant]
  6. ASPIRIN [Concomitant]
  7. FOLIC ACID [Concomitant]

REACTIONS (7)
  - BUNION [None]
  - EXOSTOSIS [None]
  - KNEE ARTHROPLASTY [None]
  - NOSOCOMIAL INFECTION [None]
  - POSTOPERATIVE INFECTION [None]
  - TOE DEFORMITY [None]
  - VENOUS INSUFFICIENCY [None]
